FAERS Safety Report 7260247-6 (Version None)
Quarter: 2011Q1

REPORT INFORMATION
  Report Type: 
  Country: None (occurrence: None)
  Receive Date: 20110130
  Receipt Date: 20100918
  Transmission Date: 20110831
  Serious: No
  Sender: FDA-Public Use
  Company Number: US-ABBOTT-10P-163-0671909-00

PATIENT
  Age: 70 Year
  Sex: Male

DRUGS (29)
  1. HUMIRA [Suspect]
     Dosage: DAY 8
  2. FLUTICASONE PROTIONATE NASAL SPRAY [Concomitant]
     Indication: PRODUCT USED FOR UNKNOWN INDICATION
  3. TIMOLOL [Concomitant]
     Indication: PRODUCT USED FOR UNKNOWN INDICATION
     Route: 047
  4. MOM [Concomitant]
     Indication: PRODUCT USED FOR UNKNOWN INDICATION
  5. TUMS [Concomitant]
     Indication: DYSPEPSIA
  6. FUROSEMIDE [Concomitant]
     Indication: FLUID RETENTION
  7. CENTRUM SILVER [Concomitant]
     Indication: PRODUCT USED FOR UNKNOWN INDICATION
     Dosage: DAILY
  8. CELEBREX [Concomitant]
     Indication: PRODUCT USED FOR UNKNOWN INDICATION
  9. LUMIGAN [Concomitant]
     Indication: PRODUCT USED FOR UNKNOWN INDICATION
     Route: 047
  10. HYDROXYZINE [Concomitant]
     Indication: PRODUCT USED FOR UNKNOWN INDICATION
     Dosage: 1-3 TABS AS NEEDED
  11. HUMIRA [Suspect]
     Indication: PSORIASIS
     Dosage: DAY 1
     Dates: start: 20100918, end: 20100918
  12. HUMIRA [Suspect]
  13. ALLEGRA D 24 HOUR [Concomitant]
     Indication: PRODUCT USED FOR UNKNOWN INDICATION
     Dosage: 180/240MG DAILY AS NEEDED
  14. DOVONEX [Concomitant]
     Indication: PRODUCT USED FOR UNKNOWN INDICATION
  15. COLACE [Concomitant]
     Indication: PRODUCT USED FOR UNKNOWN INDICATION
     Dosage: 2 IN THE EVENING
  16. ROPINIROLE [Concomitant]
     Indication: PRODUCT USED FOR UNKNOWN INDICATION
  17. WARFARIN [Concomitant]
     Indication: PRODUCT USED FOR UNKNOWN INDICATION
     Dosage: OR AS DIRECTED
  18. SPIRONOLACTONE [Concomitant]
     Indication: PRODUCT USED FOR UNKNOWN INDICATION
  19. REFRESH [Concomitant]
     Indication: PRODUCT USED FOR UNKNOWN INDICATION
     Route: 047
  20. ATAP CODEINE [Concomitant]
     Indication: PAIN
     Dosage: 500/30MG, 1-2 EVERY 8 HRS PRN
  21. ASA [Concomitant]
     Indication: PRODUCT USED FOR UNKNOWN INDICATION
  22. CLONAZEPAM [Concomitant]
     Indication: ANXIETY
     Dosage: 1/2 TO 1 EVERY 6 HRS AS NEEDED
  23. ADVAIR [Concomitant]
     Indication: CHRONIC OBSTRUCTIVE PULMONARY DISEASE
  24. TRIAMCINOLONE [Concomitant]
     Indication: PRODUCT USED FOR UNKNOWN INDICATION
     Dosage: DAILY TO AFFECTED AREAS
  25. DIGOXIN [Concomitant]
     Indication: ATRIAL FIBRILLATION
  26. METOPROLOL [Concomitant]
     Indication: BLOOD PRESSURE
     Dosage: 1/2 TAB DAILY
  27. TRIAZALAM [Concomitant]
     Indication: PRODUCT USED FOR UNKNOWN INDICATION
     Dosage: AT BEDTIME
  28. ZANAFLEX [Concomitant]
     Indication: BACK PAIN
     Dosage: 1 DAILY
  29. SALINE NASAL SPRAY [Concomitant]
     Indication: PRODUCT USED FOR UNKNOWN INDICATION
     Dosage: 1-3 SPRAYS AS NEEDED

REACTIONS (1)
  - INJECTION SITE PAIN [None]
